FAERS Safety Report 5621693-7 (Version None)
Quarter: 2008Q1

REPORT INFORMATION
  Report Type: 
  Country: None (occurrence: None)
  Receive Date: 20080211
  Receipt Date: 20080207
  Transmission Date: 20080703
  Serious: Yes (Other)
  Sender: FDA-Public Use
  Company Number: PHNU2007DE04140

PATIENT
  Age: 71 Year
  Sex: Female
  Weight: 63 kg

DRUGS (6)
  1. ZOMETA [Suspect]
     Indication: METASTASES TO BONE
     Dosage: 4 MG, QMO
     Route: 042
     Dates: start: 20030610, end: 20071101
  2. GLEEVEC [Concomitant]
     Indication: GASTROINTESTINAL STROMAL TUMOUR
     Dosage: 400 MG, QD
     Route: 048
     Dates: start: 20030430
  3. VOLTAREN [Concomitant]
     Indication: PAIN
     Dosage: UNK, PRN
     Route: 065
     Dates: start: 20060616
  4. BERLTHYROX [Concomitant]
     Indication: HYPOTHYROIDISM
     Dosage: 100 MG, QD
     Route: 065
     Dates: start: 20060511
  5. NOVALGIN [Concomitant]
     Indication: PAIN
     Dosage: UNK, PRN
     Route: 065
     Dates: start: 20070809
  6. FALITHROM ^FAHLBERG^ [Concomitant]
     Indication: ARRHYTHMIA
     Route: 065
     Dates: start: 19990101

REACTIONS (6)
  - JAW OPERATION [None]
  - LOCAL ANAESTHESIA [None]
  - OSTEONECROSIS [None]
  - PAIN IN JAW [None]
  - PULPITIS DENTAL [None]
  - TOOTH EXTRACTION [None]
